FAERS Safety Report 19079912 (Version 1)
Quarter: 2021Q1

REPORT INFORMATION
  Report Type: Spontaneous
  Country: US (occurrence: US)
  Receive Date: 20210331
  Receipt Date: 20210331
  Transmission Date: 20210420
  Serious: Yes (Other)
  Sender: FDA-Public Use
  Company Number: NVSC2021US072189

PATIENT
  Age: 38 Year
  Sex: Female

DRUGS (8)
  1. AMPHETAMINE [Concomitant]
     Active Substance: AMPHETAMINE
     Indication: INSOMNIA
     Dosage: 30 MG, BID (EXTENDED RELEASE)
     Route: 065
  2. NALOXONE [Concomitant]
     Active Substance: NALOXONE
     Indication: DEPRESSED LEVEL OF CONSCIOUSNESS
     Dosage: UNK
     Route: 065
  3. ZOLPIDEM [Suspect]
     Active Substance: ZOLPIDEM TARTRATE
     Indication: PRODUCT USED FOR UNKNOWN INDICATION
     Dosage: 5 MG (AT BEDTIME)
     Route: 065
  4. QUETIAPINE. [Concomitant]
     Active Substance: QUETIAPINE
     Indication: INSOMNIA
     Dosage: 25 MG (SIXTY TABLETS)
     Route: 048
  5. LORAZEPAM. [Concomitant]
     Active Substance: LORAZEPAM
     Indication: ANXIETY
     Dosage: 0.5 MG, QD
     Route: 065
  6. FLUMAZENIL. [Concomitant]
     Active Substance: FLUMAZENIL
     Indication: RESPIRATORY DEPRESSION
     Dosage: UNK
     Route: 065
  7. ZOLPIDEM [Suspect]
     Active Substance: ZOLPIDEM TARTRATE
     Dosage: 10 MG
     Route: 065
  8. QUETIAPINE. [Concomitant]
     Active Substance: QUETIAPINE
     Dosage: 25 MG (AT BEDTIME)
     Route: 065

REACTIONS (4)
  - Suicide attempt [Unknown]
  - Abnormal behaviour [Unknown]
  - Amnesia [Unknown]
  - Suicidal ideation [Unknown]
